FAERS Safety Report 12439449 (Version 4)
Quarter: 2017Q1

REPORT INFORMATION
  Report Type: Spontaneous
  Country: JP (occurrence: JP)
  Receive Date: 20160606
  Receipt Date: 20170314
  Transmission Date: 20170428
  Serious: Yes (Hospitalization, Other)
  Sender: FDA-Public Use
  Company Number: JP-PFIZER INC-2016280738

PATIENT
  Age: 11 Year
  Sex: Male
  Weight: 32 kg

DRUGS (16)
  1. CYLOCIDE [Concomitant]
     Active Substance: CYTARABINE
     Indication: LYMPHOMA
     Dosage: 30 MG, DAILY
     Route: 037
     Dates: start: 20160307, end: 20160307
  2. DIAMOX SEQUELS [Concomitant]
     Active Substance: ACETAZOLAMIDE
     Indication: PROPHYLAXIS
     Dosage: 500 MG, DAILY
     Route: 042
     Dates: start: 20160307, end: 20160318
  3. KETALAR [Concomitant]
     Active Substance: KETAMINE HYDROCHLORIDE
     Indication: SEDATION
     Dosage: 35 MG, DAILY
     Route: 042
     Dates: start: 20160307, end: 20160307
  4. ATROPINE. [Concomitant]
     Active Substance: ATROPINE
     Indication: SEDATION
     Dosage: 0.5 ML, DAILY
     Route: 042
     Dates: start: 20160307, end: 20160307
  5. PREDONINE [Concomitant]
     Active Substance: PREDNISOLONE
     Dosage: UNK
  6. IFOMIDE [Concomitant]
     Active Substance: IFOSFAMIDE
     Dosage: UNK
  7. DEXART [Concomitant]
     Active Substance: DEXAMETHASONE SODIUM PHOSPHATE
     Indication: LYMPHOMA
     Dosage: 16.5 MG, DAILY
     Dates: start: 20160307, end: 20160311
  8. HALIZON [Concomitant]
     Active Substance: AMPHOTERICIN B
     Dosage: UNK
  9. SOLDEM 3A [Concomitant]
     Active Substance: CARBOHYDRATES\POTASSIUM CHLORIDE\SODIUM CHLORIDE\SODIUM LACTATE
     Dosage: UNK
  10. POLYMYXIN B SULFATE. [Concomitant]
     Active Substance: POLYMYXIN B SULFATE
     Route: 048
  11. METHOTREXATE SODIUM. [Suspect]
     Active Substance: METHOTREXATE SODIUM
     Indication: LYMPHOMA
     Dosage: 5400 MG, DAILY
     Route: 041
     Dates: start: 20160307, end: 20160308
  12. METHOTREXATE SODIUM. [Suspect]
     Active Substance: METHOTREXATE SODIUM
     Dosage: 12 MG, DAILY
     Route: 037
     Dates: start: 20160307
  13. GRANISETRON [Concomitant]
     Active Substance: GRANISETRON
     Indication: PROPHYLAXIS OF NAUSEA AND VOMITING
     Dosage: 1.5 MG, DAILY
     Route: 042
     Dates: start: 20160307, end: 20160308
  14. MEYLON [Concomitant]
     Active Substance: SODIUM BICARBONATE
     Dosage: UNK
  15. FILDESIN [Concomitant]
     Active Substance: VINDESINE SULFATE
     Indication: LYMPHOMA
     Dosage: 3.3 MG, DAILY
     Route: 042
     Dates: start: 20160307, end: 20160307
  16. LEUCOVORIN CALCIUM. [Concomitant]
     Active Substance: LEUCOVORIN CALCIUM
     Indication: ANGIOIMMUNOBLASTIC T-CELL LYMPHOMA
     Dosage: 18 MG (15 MG/M2) 4X/DAY

REACTIONS (8)
  - Nephropathy toxic [Recovered/Resolved]
  - Renal impairment [Recovered/Resolved]
  - Toxicity to various agents [Recovering/Resolving]
  - Drug level increased [Recovered/Resolved]
  - Alanine aminotransferase increased [Unknown]
  - Vomiting [Unknown]
  - Diarrhoea [Unknown]
  - Acute kidney injury [Recovered/Resolved]

NARRATIVE: CASE EVENT DATE: 20160309
